FAERS Safety Report 5521452-X (Version None)
Quarter: 2007Q4

REPORT INFORMATION
  Report Type: 
  Country: None (occurrence: None)
  Receive Date: 20071119
  Receipt Date: 20071108
  Transmission Date: 20080405
  Serious: Yes (Hospitalization)
  Sender: FDA-Public Use
  Company Number: US-PFIZER INC-2007036803

PATIENT
  Sex: Female
  Weight: 102.7 kg

DRUGS (5)
  1. SU-011,248 [Suspect]
     Indication: BREAST CANCER
     Route: 048
  2. XANAX [Concomitant]
     Route: 048
  3. DARVOCET [Concomitant]
     Route: 048
     Dates: start: 20070406
  4. COMPAZINE [Concomitant]
     Route: 048
  5. CLARITIN [Concomitant]
     Route: 048
     Dates: start: 20070405

REACTIONS (2)
  - CELLULITIS [None]
  - FEBRILE NEUTROPENIA [None]
